FAERS Safety Report 8596455-1 (Version None)
Quarter: 2012Q3

REPORT INFORMATION
  Report Type: 
  Country: None (occurrence: None)
  Receive Date: 20120806
  Receipt Date: 20120806
  Transmission Date: 20120928
  Serious: Yes (Other)
  Sender: FDA-Public Use
  Company Number: None

PATIENT
  Age: 26 Year
  Sex: Female
  Weight: 53.5244 kg

DRUGS (1)
  1. DORYX [Suspect]
     Indication: DERMATITIS
     Dosage: 150MG DAILY PO
     Route: 048
     Dates: start: 20120602, end: 20120622

REACTIONS (2)
  - CHOKING [None]
  - PRODUCT SHAPE ISSUE [None]
